FAERS Safety Report 22527833 (Version 1)
Quarter: 2023Q2

REPORT INFORMATION
  Report Type: Spontaneous
  Country: US (occurrence: None)
  Receive Date: 20230606
  Receipt Date: 20230606
  Transmission Date: 20230721
  Serious: No
  Sender: FDA-Public Use
  Company Number: US-ROCHE-3301505

PATIENT
  Age: 27 Year
  Sex: Female

DRUGS (2)
  1. ENSPRYNG [Suspect]
     Active Substance: SATRALIZUMAB-MWGE
     Indication: Neuromyelitis optica spectrum disorder
     Route: 058
     Dates: start: 202208
  2. PREDNISONE [Concomitant]
     Active Substance: PREDNISONE
     Indication: Eye pain
     Dosage: 60 TO 80 MG, UNTIL TAPER WAS COMPLETED JAN-2023
     Route: 058
     Dates: end: 202301

REACTIONS (10)
  - Limb discomfort [Recovering/Resolving]
  - Arthralgia [Recovering/Resolving]
  - Eye disorder [Recovering/Resolving]
  - Sinusitis [Unknown]
  - Fatigue [Not Recovered/Not Resolved]
  - Brain fog [Not Recovered/Not Resolved]
  - Photopsia [Unknown]
  - Neck pain [Not Recovered/Not Resolved]
  - Insomnia [Recovered/Resolved]
  - Arthralgia [Recovering/Resolving]

NARRATIVE: CASE EVENT DATE: 20220801
